FAERS Safety Report 7472984-9 (Version None)
Quarter: 2011Q2

REPORT INFORMATION
  Report Type: 
  Country: None (occurrence: None)
  Receive Date: 20110511
  Receipt Date: 20110505
  Transmission Date: 20111010
  Serious: Yes (Other)
  Sender: FDA-Public Use
  Company Number: PHHY2011US38157

PATIENT
  Sex: Male

DRUGS (1)
  1. GLEEVEC [Suspect]
     Indication: GASTROINTESTINAL STROMAL TUMOUR
     Dosage: 400 MG,
     Route: 048

REACTIONS (3)
  - NEOPLASM MALIGNANT [None]
  - UPPER RESPIRATORY TRACT INFECTION [None]
  - RENAL CANCER [None]
